FAERS Safety Report 23913072 (Version 1)
Quarter: 2024Q2

REPORT INFORMATION
  Report Type: Spontaneous
  Country: US (occurrence: US)
  Receive Date: 20240529
  Receipt Date: 20240529
  Transmission Date: 20240716
  Serious: No
  Sender: FDA-Public Use
  Company Number: US-INGENUS PHARMACEUTICALS, LLC-2024INF000013

PATIENT

DRUGS (3)
  1. DORZOLAMIDE HYDROCHLORIDE AND TIMOLOL MALEATE [Suspect]
     Active Substance: DORZOLAMIDE HYDROCHLORIDE\TIMOLOL MALEATE
     Indication: Glaucoma
     Dosage: UNK
     Route: 047
  2. LEVOTHYROXINE [Concomitant]
     Active Substance: LEVOTHYROXINE\LEVOTHYROXINE SODIUM
     Indication: Hypothyroidism
     Dosage: UNK
     Route: 065
  3. ATORVASTATIN [Concomitant]
     Active Substance: ATORVASTATIN
     Indication: Blood cholesterol
     Dosage: UNK
     Route: 065

REACTIONS (10)
  - Eyelid skin dryness [Recovering/Resolving]
  - Skin exfoliation [Unknown]
  - Skin discolouration [Not Recovered/Not Resolved]
  - Hypersensitivity [Recovering/Resolving]
  - Eye pruritus [Recovered/Resolved]
  - Vision blurred [Unknown]
  - Eyelid irritation [Recovered/Resolved]
  - Rash [Unknown]
  - Swelling [Unknown]
  - Dizziness [Unknown]
